FAERS Safety Report 16333991 (Version 2)
Quarter: 2019Q2

REPORT INFORMATION
  Report Type: Spontaneous
  Country: CZ (occurrence: CZ)
  Receive Date: 20190520
  Receipt Date: 20190528
  Transmission Date: 20190711
  Serious: Yes (Other)
  Sender: FDA-Public Use
  Company Number: CZ-MYLANLABS-2018M1077996

PATIENT
  Age: 54 Year
  Sex: Female

DRUGS (2)
  1. CAPECITABINE MYLAN [Suspect]
     Active Substance: CAPECITABINE
     Indication: ADENOCARCINOMA
  2. CAPECITABINE MYLAN [Suspect]
     Active Substance: CAPECITABINE
     Indication: BLADDER ADENOCARCINOMA STAGE UNSPECIFIED
     Dosage: 1 DOSAGE FORM, CYCLE

REACTIONS (2)
  - Gastrointestinal disorder [Unknown]
  - Gastrointestinal tract irritation [Unknown]
